FAERS Safety Report 8328055-2 (Version None)
Quarter: 2012Q2

REPORT INFORMATION
  Report Type: 
  Country: None (occurrence: None)
  Receive Date: 20120502
  Receipt Date: 20120423
  Transmission Date: 20120825
  Serious: Yes (Other)
  Sender: FDA-Public Use
  Company Number: PHHY2012AR034991

PATIENT
  Sex: Female

DRUGS (1)
  1. EXFORGE [Suspect]
     Indication: HYPERTENSION
     Dosage: 1 DF (80/5 MG), DAILY
     Dates: start: 20120101

REACTIONS (4)
  - FALL [None]
  - FEELING ABNORMAL [None]
  - MENISCUS LESION [None]
  - ABDOMINAL PAIN [None]
